FAERS Safety Report 6240785-5 (Version None)
Quarter: 2009Q2

REPORT INFORMATION
  Report Type: 
  Country: None (occurrence: None)
  Receive Date: 20090619
  Receipt Date: 20090619
  Transmission Date: 20091009
  Serious: No
  Sender: FDA-Public Use
  Company Number: None

PATIENT
  Sex: Female
  Weight: 113.2 kg

DRUGS (2)
  1. DOXORUBICIN HCL [Suspect]
     Dosage: 128 MG
     Dates: end: 20090521
  2. CYCLOPHOSPHAMIDE [Suspect]
     Dosage: 1284 MG
     Dates: end: 20090521

REACTIONS (3)
  - DYSPNOEA EXERTIONAL [None]
  - EJECTION FRACTION DECREASED [None]
  - OEDEMA PERIPHERAL [None]
